FAERS Safety Report 20872459 (Version 1)
Quarter: 2022Q2

REPORT INFORMATION
  Report Type: Spontaneous
  Country: IT (occurrence: IT)
  Receive Date: 20220525
  Receipt Date: 20220525
  Transmission Date: 20220720
  Serious: Yes (Other)
  Sender: FDA-Public Use
  Company Number: IT-PFIZER INC-202200733911

PATIENT
  Age: 25 Year
  Sex: Female

DRUGS (1)
  1. AZITHROMYCIN [Suspect]
     Active Substance: AZITHROMYCIN
     Indication: Antibiotic therapy
     Dosage: 1 DF, 1X/DAY
     Route: 048
     Dates: start: 20220204, end: 20220206

REACTIONS (4)
  - Symmetrical drug-related intertriginous and flexural exanthema [Recovering/Resolving]
  - Hypersensitivity [Recovering/Resolving]
  - Erythema [Unknown]
  - Condition aggravated [Unknown]

NARRATIVE: CASE EVENT DATE: 20220204
